FAERS Safety Report 5346904-7 (Version None)
Quarter: 2007Q2

REPORT INFORMATION
  Report Type: 
  Country: None (occurrence: None)
  Receive Date: 20070502
  Receipt Date: 20070219
  Transmission Date: 20071010
  Serious: Yes (Hospitalization)
  Sender: FDA-Public Use
  Company Number: 152155USA

PATIENT
  Age: 5 Year
  Sex: Male

DRUGS (3)
  1. SALBUTAMOL SULFATE INHALATIO (SALBUTAMOL) [Suspect]
     Dosage: ORAL
     Route: 055
     Dates: start: 20060901
  2. MONTELUKAST SODIUM [Concomitant]
  3. FLUTICASONE PROPIONATE [Concomitant]

REACTIONS (1)
  - RESPIRATORY SYNCYTIAL VIRUS INFECTION [None]
